FAERS Safety Report 10442356 (Version 2)
Quarter: 2014Q3

REPORT INFORMATION
  Report Type: Spontaneous
  Country: US (occurrence: None)
  Receive Date: 20140908
  Receipt Date: 20140916
  Transmission Date: 20150326
  Serious: Yes (Other)
  Sender: FDA-Public Use
  Company Number: ADR-2014-01609

PATIENT
  Age: 63 Year
  Sex: Male

DRUGS (4)
  1. DILAUDID [Suspect]
     Active Substance: HYDROMORPHONE HYDROCHLORIDE
     Dosage: UNKNOWN
  2. BACLOFEN. [Suspect]
     Active Substance: BACLOFEN
     Indication: PAIN
     Dosage: UNKNOWN
  3. BUPIVACAINE INTRATHECAL [Suspect]
     Active Substance: BUPIVACAINE
     Route: 037
  4. FENTANYL INTRATHECAL [Suspect]
     Active Substance: FENTANYL
     Route: 037

REACTIONS (8)
  - Device malfunction [None]
  - Staphylococcal infection [None]
  - Aortic valve replacement [None]
  - Endocarditis [None]
  - Decreased appetite [None]
  - Localised infection [None]
  - Nausea [None]
  - Withdrawal syndrome [None]
